FAERS Safety Report 21028675 (Version 1)
Quarter: 2022Q2

REPORT INFORMATION
  Report Type: Report from Study
  Country: IL (occurrence: IL)
  Receive Date: 20220630
  Receipt Date: 20220630
  Transmission Date: 20220721
  Serious: No
  Sender: FDA-Public Use
  Company Number: IL-JNJFOC-20220629827

PATIENT
  Age: 25 Year
  Sex: Female

DRUGS (2)
  1. STELARA [Suspect]
     Active Substance: USTEKINUMAB
     Indication: Crohn^s disease
     Dosage: 90.00 MG/ML
     Route: 058
     Dates: start: 20190318
  2. STELARA [Suspect]
     Active Substance: USTEKINUMAB
     Route: 058
     Dates: start: 20220613

REACTIONS (3)
  - Injection site mass [Recovering/Resolving]
  - Injection site haemorrhage [Recovering/Resolving]
  - Device deployment issue [Unknown]

NARRATIVE: CASE EVENT DATE: 20220613
